FAERS Safety Report 25085920 (Version 2)
Quarter: 2025Q1

REPORT INFORMATION
  Report Type: Spontaneous
  Country: GB (occurrence: GB)
  Receive Date: 20250317
  Receipt Date: 20250325
  Transmission Date: 20250408
  Serious: Yes (Other)
  Sender: BOEHRINGER INGELHEIM
  Company Number: GB-MHRA-34971949

PATIENT
  Age: 66 Year
  Sex: Male
  Weight: 99 kg

DRUGS (28)
  1. EMPAGLIFLOZIN [Suspect]
     Active Substance: EMPAGLIFLOZIN
     Indication: Type 2 diabetes mellitus
     Dates: start: 202311, end: 20241128
  2. RAMIPRIL [Concomitant]
     Active Substance: RAMIPRIL
     Indication: Blood pressure measurement
     Dosage: PM
  3. ATORVASTATIN CALCIUM [Concomitant]
     Active Substance: ATORVASTATIN CALCIUM
     Indication: Blood cholesterol
     Dosage: PM
  4. Lymecycline 408mg [Concomitant]
     Indication: Skin infection
     Dosage: AM?6 MONTH CYCLE SWAP WITH MINOCYCLINE 100MG TO REDUCE RESISTANCE.
  5. Bendroflumethiazide 2.5mg [Concomitant]
     Indication: Blood pressure measurement
     Dosage: AM
  6. Sukkarto SR 1000mg tablets [Concomitant]
     Indication: Type 2 diabetes mellitus
     Dosage: 2 X 1 PER DAY AM AND PM
  7. BACLOFEN [Concomitant]
     Active Substance: BACLOFEN
     Indication: Dystonia
  8. Buscopan IBS Relief 10mg tabs [Concomitant]
     Indication: Irritable bowel syndrome
     Dosage: PM?FORM OF ADMIN: TABS
  9. Co-codamol 30/500mg [Concomitant]
     Indication: Osteoarthritis
     Dosage: 2 X 4 PER DAY
  10. Co-codamol 30/500mg [Concomitant]
     Indication: Fibromyalgia
  11. Co-codamol 30/500mg [Concomitant]
     Indication: Costochondritis
  12. B12 injection [Concomitant]
     Indication: Vitamin B12 deficiency
  13. CELECOXIB [Concomitant]
     Active Substance: CELECOXIB
     Indication: Osteoarthritis
     Dosage: AM
  14. CELECOXIB [Concomitant]
     Active Substance: CELECOXIB
     Indication: Fibromyalgia
  15. CELECOXIB [Concomitant]
     Active Substance: CELECOXIB
     Indication: Costochondritis
  16. Levothyroxine 175/150mg [Concomitant]
     Indication: Hypothyroidism
  17. Levothyroxine 175/150mg [Concomitant]
  18. Moxonidine 200mg [Concomitant]
     Indication: Blood pressure measurement
     Dosage: AM
  19. Nebido 1g / 4ml ampoules [Concomitant]
     Indication: Hypogonadism
  20. Docusate Sodium 100mg capsules [Concomitant]
     Indication: Irritable bowel syndrome
     Dosage: PM
  21. Hypromellose Eye Drops 1% [Concomitant]
     Indication: Dry eye
  22. Hypromellose Eye Drops 1% [Concomitant]
     Indication: Blepharitis
  23. LANSOPRAZOLE [Concomitant]
     Active Substance: LANSOPRAZOLE
     Indication: Gastritis
     Dosage: AM
  24. Pro-Banthine 15mg [Concomitant]
     Indication: Irritable bowel syndrome
     Dosage: PM
  25. VENLAFAXINE [Concomitant]
     Active Substance: VENLAFAXINE HYDROCHLORIDE
     Indication: Depression
     Dosage: PM
  26. VENLAFAXINE [Concomitant]
     Active Substance: VENLAFAXINE HYDROCHLORIDE
     Indication: Post-traumatic stress disorder
  27. Ferrous Gluconate 300mg [Concomitant]
     Indication: Thalassaemia
     Dosage: PM
  28. MINOCYCLINE [Concomitant]
     Active Substance: MINOCYCLINE HYDROCHLORIDE
     Indication: Skin infection
     Dosage: AM?6 MONTH CYCLE SWAP WITH LYMECYCLINE 408 MG TO REDUCE RESISTANCE

REACTIONS (12)
  - Polycythaemia [Recovered/Resolved]
  - Candida infection [Recovered/Resolved]
  - Vision blurred [Recovered/Resolved]
  - Penile blister [Recovered/Resolved]
  - Night sweats [Recovered/Resolved]
  - Penile erythema [Recovered/Resolved]
  - Headache [Recovered/Resolved]
  - Brain fog [Recovered/Resolved]
  - Penile swelling [Recovered/Resolved]
  - Dizziness [Recovered/Resolved]
  - Penile pain [Recovered/Resolved]
  - Aphasia [Recovered/Resolved]

NARRATIVE: CASE EVENT DATE: 20240201
